FAERS Safety Report 7364805-X (Version None)
Quarter: 2011Q1

REPORT INFORMATION
  Report Type: 
  Country: None (occurrence: None)
  Receive Date: 20110321
  Receipt Date: 20110311
  Transmission Date: 20110831
  Serious: Yes (Hospitalization)
  Sender: FDA-Public Use
  Company Number: BR-ASTRAZENECA-2011SE14081

PATIENT
  Age: 76 Year
  Sex: Female

DRUGS (4)
  1. ANLODIPINE [Concomitant]
     Indication: HYPERTENSION
     Route: 048
     Dates: start: 20070101
  2. SYMBICORT [Suspect]
     Indication: BRONCHITIS
     Dosage: 160/4.5 MCG, TWO TIMES A DAY.
     Route: 055
     Dates: start: 20080101, end: 20110201
  3. SYMBICORT [Suspect]
     Dosage: AS REQUIRED.
     Route: 055
     Dates: start: 20080101, end: 20110201
  4. BAMIFIX [Concomitant]
     Route: 048
     Dates: start: 20050101

REACTIONS (2)
  - FATIGUE [None]
  - DYSPNOEA [None]
